FAERS Safety Report 7387207-9 (Version None)
Quarter: 2011Q1

REPORT INFORMATION
  Report Type: 
  Country: None (occurrence: None)
  Receive Date: 20110331
  Receipt Date: 20110324
  Transmission Date: 20110831
  Serious: Yes (Hospitalization)
  Sender: FDA-Public Use
  Company Number: Z0007686A

PATIENT
  Sex: Male
  Weight: 60.8 kg

DRUGS (3)
  1. PAZOPANIB [Suspect]
     Indication: RENAL CELL CARCINOMA
     Dosage: 800MG PER DAY
     Route: 048
     Dates: start: 20101022
  2. GELCLAIR [Concomitant]
     Indication: STOMATITIS
     Route: 048
     Dates: start: 20110125
  3. CYCLIZINE [Concomitant]
     Indication: NAUSEA
     Dosage: 50MG THREE TIMES PER DAY
     Route: 048
     Dates: start: 20110125, end: 20110128

REACTIONS (7)
  - DYSURIA [None]
  - STOMATITIS [None]
  - INFECTION [None]
  - FATIGUE [None]
  - PERFORMANCE STATUS DECREASED [None]
  - RECTAL HAEMORRHAGE [None]
  - ORAL CANDIDIASIS [None]
